FAERS Safety Report 4623516-1 (Version None)
Quarter: 2005Q1

REPORT INFORMATION
  Report Type: 
  Country: None (occurrence: None)
  Receive Date: 20050330
  Receipt Date: 20050317
  Transmission Date: 20050727
  Serious: Yes (Life-Threatening)
  Sender: FDA-Public Use
  Company Number: 2005-126493-NL

PATIENT
  Age: 84 Year
  Sex: Male
  Weight: 74.4 kg

DRUGS (6)
  1. TICE BCG [Suspect]
     Indication: BLADDER NEOPLASM
     Dosage: DF INTRAVESICAL
     Route: 043
     Dates: start: 19960101, end: 20040101
  2. ATENOLOL [Concomitant]
  3. ASPIRIN [Concomitant]
  4. LEVITRA [Concomitant]
  5. ATORVASTATIN CALCIUM [Concomitant]
  6. CITALOPRAM HYDROBROMIDE [Concomitant]

REACTIONS (1)
  - CREUTZFELDT-JAKOB DISEASE [None]
